FAERS Safety Report 5471842-9 (Version None)
Quarter: 2007Q3

REPORT INFORMATION
  Report Type: 
  Country: None (occurrence: None)
  Receive Date: 20070928
  Receipt Date: 20070622
  Transmission Date: 20080115
  Serious: No
  Sender: FDA-Public Use
  Company Number: US-BRISTOL-MYERS SQUIBB COMPANY-13823216

PATIENT
  Age: 53 Year
  Sex: Male

DRUGS (4)
  1. DEFINITY [Suspect]
  2. PREVACID [Concomitant]
  3. LIPITOR [Concomitant]
  4. PRINIVIL [Concomitant]

REACTIONS (1)
  - MUSCLE SPASMS [None]
